FAERS Safety Report 18734444 (Version 1)
Quarter: 2021Q1

REPORT INFORMATION
  Report Type: Spontaneous
  Country: US (occurrence: US)
  Receive Date: 20210112
  Receipt Date: 20210112
  Transmission Date: 20210419
  Serious: Yes (Hospitalization)
  Sender: FDA-Public Use
  Company Number: None

PATIENT
  Age: 81 Year
  Sex: Female

DRUGS (15)
  1. LATANOPROST. [Concomitant]
     Active Substance: LATANOPROST
     Dates: start: 20201109
  2. B?COMP/B?12 [Concomitant]
     Dates: start: 20201109
  3. MULTIPLE VITAMIN [Concomitant]
     Active Substance: VITAMINS
     Dates: start: 20201109
  4. POT CHLOR [Concomitant]
     Dates: start: 20201109
  5. CYCLOPHOSPH [Concomitant]
     Dates: start: 20201125
  6. LEVOTHYROXINE. [Concomitant]
     Active Substance: LEVOTHYROXINE
     Dates: start: 20201109
  7. OMEPRAZOLE. [Concomitant]
     Active Substance: OMEPRAZOLE
     Dates: start: 20201109
  8. CYCLOPHOSPHAMIDE. [Suspect]
     Active Substance: CYCLOPHOSPHAMIDE
     Indication: AMYLOIDOSIS
     Dosage: ?          OTHER FREQUENCY:WEEKLY;?
     Route: 048
     Dates: start: 20201219
  9. ATORVASTATIN [Concomitant]
     Active Substance: ATORVASTATIN
     Dates: start: 20201109
  10. TEPEZZA INJ [Concomitant]
     Dates: start: 20201109
  11. TYLENOL [Concomitant]
     Active Substance: ACETAMINOPHEN
     Dates: start: 20201109
  12. METOPROLOL. [Concomitant]
     Active Substance: METOPROLOL
     Dates: start: 20201109
  13. DORZOLIMIDE/TIMOLOL [Concomitant]
     Dates: start: 20201109
  14. MAGNESIUM [Concomitant]
     Active Substance: MAGNESIUM
     Dates: start: 20201109
  15. SELENIUM [Concomitant]
     Active Substance: SELENIUM
     Dates: start: 20201109

REACTIONS (1)
  - Abdominal pain upper [None]

NARRATIVE: CASE EVENT DATE: 20210112
